FAERS Safety Report 18711121 (Version 1)
Quarter: 2021Q1

REPORT INFORMATION
  Report Type: Spontaneous
  Country: US (occurrence: US)
  Receive Date: 20210107
  Receipt Date: 20210107
  Transmission Date: 20210419
  Serious: No
  Sender: FDA-Public Use
  Company Number: US-SA-2021SA004216

PATIENT

DRUGS (13)
  1. DUPIXENT [Suspect]
     Active Substance: DUPILUMAB
     Dosage: 300 MG, QOW
     Route: 058
  2. HYDROXYZINE HCL [Concomitant]
     Active Substance: HYDROXYZINE HYDROCHLORIDE
  3. BUSPIRONE HCL [Concomitant]
     Active Substance: BUSPIRONE HYDROCHLORIDE
  4. LEVOCETIRIZINE DIHYDROCHLORIDE. [Concomitant]
     Active Substance: LEVOCETIRIZINE DIHYDROCHLORIDE
  5. MUPIROCIN. [Concomitant]
     Active Substance: MUPIROCIN
  6. LEVOTHYROXINE SODIUM. [Concomitant]
     Active Substance: LEVOTHYROXINE SODIUM
  7. TACROLIMUS. [Concomitant]
     Active Substance: TACROLIMUS
  8. KETOCONAZOLE. [Concomitant]
     Active Substance: KETOCONAZOLE
  9. METOPROLOL SUCCINATE. [Concomitant]
     Active Substance: METOPROLOL SUCCINATE
  10. FAMOTIDINE. [Concomitant]
     Active Substance: FAMOTIDINE
  11. RESTASIS [Concomitant]
     Active Substance: CYCLOSPORINE
  12. DOXYCYCLINE. [Concomitant]
     Active Substance: DOXYCYCLINE
  13. OMEPRAZOLE. [Concomitant]
     Active Substance: OMEPRAZOLE

REACTIONS (1)
  - Erythema [Not Recovered/Not Resolved]
